FAERS Safety Report 6956450-2 (Version None)
Quarter: 2010Q3

REPORT INFORMATION
  Report Type: 
  Country: None (occurrence: None)
  Receive Date: 20100830
  Receipt Date: 20100730
  Transmission Date: 20110219
  Serious: No
  Sender: FDA-Public Use
  Company Number: US-BAYER-201029535NA

PATIENT
  Sex: Male
  Weight: 59 kg

DRUGS (2)
  1. ULTRAVIST (PHARMACY BULK) [Suspect]
     Indication: COMPUTERISED TOMOGRAM
     Dosage: UNIT DOSE: 500 ML
     Route: 042
     Dates: start: 20100730, end: 20100730
  2. NAPROXEN [Concomitant]

REACTIONS (2)
  - PRURITUS [None]
  - URTICARIA [None]
